FAERS Safety Report 8210062-1 (Version None)
Quarter: 2012Q1

REPORT INFORMATION
  Report Type: 
  Country: None (occurrence: None)
  Receive Date: 20120314
  Receipt Date: 20110328
  Transmission Date: 20120608
  Serious: No
  Sender: FDA-Public Use
  Company Number: US-ASTRAZENECA-2011SE17913

PATIENT
  Sex: Female

DRUGS (8)
  1. TOPROL-XL [Suspect]
     Route: 048
  2. PROTONIX [Concomitant]
  3. CRESTOR [Suspect]
     Route: 048
  4. COMBIGAN [Concomitant]
  5. NAPROXEN [Concomitant]
  6. CRESTOR [Suspect]
     Route: 048
     Dates: start: 20110324
  7. BENICAR [Concomitant]
  8. TRAVATAN [Concomitant]

REACTIONS (1)
  - HYPERCHOLESTEROLAEMIA [None]
